FAERS Safety Report 7255136-7 (Version None)
Quarter: 2011Q1

REPORT INFORMATION
  Report Type: 
  Country: None (occurrence: None)
  Receive Date: 20110129
  Receipt Date: 20100304
  Transmission Date: 20110831
  Serious: No
  Sender: FDA-Public Use
  Company Number: US-ABBOTT-10P-163-0625355-00

PATIENT
  Sex: Male

DRUGS (3)
  1. ZITHROMAX [Concomitant]
     Indication: LYMPHADENOPATHY
  2. HUMIRA [Suspect]
     Indication: CROHN'S DISEASE
     Dates: start: 20091230
  3. STEROIDS [Concomitant]
     Indication: PRODUCT USED FOR UNKNOWN INDICATION

REACTIONS (5)
  - UPPER-AIRWAY COUGH SYNDROME [None]
  - COUGH [None]
  - RESPIRATORY TRACT INFECTION [None]
  - SWELLING FACE [None]
  - EAR INFECTION [None]
